FAERS Safety Report 10238445 (Version 1)
Quarter: 2014Q2

REPORT INFORMATION
  Report Type: Spontaneous
  Country: DE (occurrence: DE)
  Receive Date: 20140616
  Receipt Date: 20140616
  Transmission Date: 20141212
  Serious: Yes (Other)
  Sender: FDA-Public Use
  Company Number: DE-ASTRAZENECA-2014SE39945

PATIENT
  Age: 32 Year
  Sex: Female

DRUGS (7)
  1. SEROQUEL PROLONG [Suspect]
     Route: 048
     Dates: start: 20130626, end: 20130702
  2. SEROQUEL PROLONG [Suspect]
     Route: 048
     Dates: start: 20130703, end: 20130718
  3. SEROQUEL PROLONG [Suspect]
     Route: 048
     Dates: start: 20130719, end: 20130722
  4. SEROQUEL PROLONG [Suspect]
     Route: 048
     Dates: start: 20130723, end: 20130813
  5. SEROQUEL PROLONG [Suspect]
     Route: 048
     Dates: start: 20130814, end: 20130819
  6. SEROQUEL PROLONG [Suspect]
     Route: 048
     Dates: start: 20130820
  7. CYMBALTA [Concomitant]
     Dosage: 0-90 MG DAILY
     Route: 048

REACTIONS (8)
  - Paraesthesia [Recovering/Resolving]
  - Carpal tunnel syndrome [Unknown]
  - Myosclerosis [Unknown]
  - Peripheral nerve paresis [Unknown]
  - Pain in extremity [Unknown]
  - Paraesthesia [Unknown]
  - Paraesthesia [Unknown]
  - Vibratory sense increased [Unknown]
